FAERS Safety Report 7167341-9 (Version None)
Quarter: 2010Q4

REPORT INFORMATION
  Report Type: 
  Country: None (occurrence: None)
  Receive Date: 20101216
  Receipt Date: 20101210
  Transmission Date: 20110411
  Serious: Yes (Hospitalization)
  Sender: FDA-Public Use
  Company Number: GB-BRISTOL-MYERS SQUIBB COMPANY-15440571

PATIENT
  Sex: Female

DRUGS (1)
  1. STARIL TABS [Suspect]
     Dosage: DOSE TAKEN FOR NEARLY 20 YEARS.

REACTIONS (1)
  - CARDIAC PACEMAKER INSERTION [None]
